FAERS Safety Report 16203204 (Version 1)
Quarter: 2019Q2

REPORT INFORMATION
  Report Type: Other
  Country: CN (occurrence: CN)
  Receive Date: 20190416
  Receipt Date: 20190416
  Transmission Date: 20190711
  Serious: Yes (Other)
  Sender: FDA-Public Use
  Company Number: CN-JIANGSU HENGRUI MEDICINE CO., LTD.-2065862

PATIENT
  Age: 71 Year
  Sex: Male
  Weight: 55 kg

DRUGS (5)
  1. GABAPENTIN. [Suspect]
     Active Substance: GABAPENTIN
     Indication: ANALGESIC THERAPY
     Route: 048
     Dates: start: 20181216, end: 20190118
  2. BUTYLPHTHALIDE SOFT CAPSULES [Suspect]
     Active Substance: BUTYLPHTHALIDE
     Route: 048
     Dates: start: 20181216, end: 20190118
  3. ATORVASTATIN CALCIUM. [Suspect]
     Active Substance: ATORVASTATIN CALCIUM
     Route: 048
     Dates: start: 20181216, end: 20190118
  4. MECOBALAMIN TABLETS [Suspect]
     Active Substance: METHYLCOBALAMIN
     Route: 048
     Dates: start: 20181216, end: 20190118
  5. ASPIRIN. [Suspect]
     Active Substance: ASPIRIN
     Route: 048
     Dates: start: 20181216, end: 20190118

REACTIONS (1)
  - Dermatitis [Recovering/Resolving]

NARRATIVE: CASE EVENT DATE: 20181223
